FAERS Safety Report 6965709-4 (Version None)
Quarter: 2010Q3

REPORT INFORMATION
  Report Type: 
  Country: None (occurrence: None)
  Receive Date: 20100903
  Receipt Date: 20100826
  Transmission Date: 20110219
  Serious: Yes (Death, Hospitalization)
  Sender: FDA-Public Use
  Company Number: IN-JNJFOC-20100804377

PATIENT
  Age: 24 Year
  Sex: Female

DRUGS (5)
  1. ACETAMINOPHEN [Suspect]
     Route: 065
  2. ACETAMINOPHEN [Suspect]
     Indication: VIRAL INFECTION
     Route: 065
  3. IBUPROFEN [Suspect]
     Indication: VIRAL INFECTION
  4. ALL OTHER THERAPEUTIC PRODUCTS [Concomitant]
     Indication: VIRAL INFECTION
     Route: 065
  5. ANTI-EPILEPTIC DRUG [Concomitant]

REACTIONS (2)
  - CONVULSION [None]
  - STEVENS-JOHNSON SYNDROME [None]
